FAERS Safety Report 8800861 (Version 1)
Quarter: 2012Q4

REPORT INFORMATION
  Report Type: 
  Country: RU (occurrence: RU)
  Receive Date: 20120921
  Receipt Date: 20120921
  Transmission Date: 20130627
  Serious: Yes (Death)
  Sender: FDA-Public Use
  Company Number: RU-ACTELION-A-CH2012-71673

PATIENT
  Age: 8 Year
  Sex: Female

DRUGS (3)
  1. TRACLEER [Suspect]
     Indication: PULMONARY ARTERIAL HYPERTENSION
     Dosage: 32.25 mg, bid
     Route: 048
     Dates: start: 201201
  2. SILDENAFIL [Concomitant]
  3. PREDNISOLONE [Concomitant]

REACTIONS (1)
  - Death [Fatal]
